FAERS Safety Report 8305258-4 (Version None)
Quarter: 2012Q2

REPORT INFORMATION
  Report Type: 
  Country: None (occurrence: None)
  Receive Date: 20120423
  Receipt Date: 20120410
  Transmission Date: 20120825
  Serious: Yes (Hospitalization, Other)
  Sender: FDA-Public Use
  Company Number: JP-JNJFOC-20120205420

PATIENT
  Sex: Male
  Weight: 45 kg

DRUGS (18)
  1. FENTANYL-100 [Suspect]
     Dosage: 2 X 12.5 UG/ HR PATCH
     Route: 062
     Dates: start: 20110616, end: 20110628
  2. ISONIAZID [Concomitant]
     Indication: TUBERCULOSIS
     Route: 048
     Dates: start: 20110625
  3. REBAMIPIDE [Concomitant]
     Route: 048
  4. ETHAMBUTOL HYDROCHLORIDE [Concomitant]
     Indication: TUBERCULOSIS
     Route: 048
     Dates: start: 20110625
  5. AMLODIPINE [Concomitant]
     Route: 048
  6. ROHYPNOL [Concomitant]
     Route: 048
  7. RIFAMPICIN [Interacting]
     Indication: TUBERCULOSIS
     Route: 048
     Dates: start: 20110625
  8. LANSOPRAZOLE [Concomitant]
     Route: 048
  9. FENTANYL-100 [Suspect]
     Route: 062
     Dates: start: 20110628, end: 20110701
  10. CELEBREX [Concomitant]
     Indication: CANCER PAIN
     Route: 048
     Dates: start: 20110610
  11. PYRIDOXAL CALCIUM PHOSPHATE [Concomitant]
     Route: 048
  12. MORPHINE [Concomitant]
     Indication: CANCER PAIN
     Dosage: 10MG TWO OR THREE TIMES DAILY
     Route: 048
  13. MAGNESIUM OXIDE [Concomitant]
     Route: 048
  14. ZYRTEC [Concomitant]
     Route: 048
  15. MUCOSOLVAN [Concomitant]
     Route: 048
  16. THEO-DUR [Concomitant]
     Route: 048
  17. FENTANYL-100 [Suspect]
     Indication: CANCER PAIN
     Route: 062
     Dates: start: 20110610, end: 20110616
  18. PROCHLORPERAZINE [Concomitant]
     Route: 048

REACTIONS (2)
  - DRUG INTERACTION [None]
  - PAIN [None]
